FAERS Safety Report 4406259-9 (Version None)
Quarter: 2004Q3

REPORT INFORMATION
  Report Type: 
  Country: None (occurrence: None)
  Receive Date: 20040723
  Receipt Date: 20030527
  Transmission Date: 20050211
  Serious: No
  Sender: FDA-Public Use
  Company Number: US-GLAXOSMITHKLINE-A0409581A

PATIENT
  Age: 76 Year
  Sex: Female

DRUGS (12)
  1. AVANDIA [Suspect]
     Dosage: 4MG PER DAY
     Route: 048
     Dates: start: 20030523
  2. NPH INSULIN [Concomitant]
  3. REGULAR INSULIN [Concomitant]
  4. PREVACID [Concomitant]
  5. LEVOXYL [Concomitant]
  6. LIPITOR [Concomitant]
  7. ULTRAM [Concomitant]
  8. LOPRESSOR [Concomitant]
  9. NEURONTIN [Concomitant]
  10. ISOSORBIDE [Concomitant]
     Dosage: 30MG TWICE PER DAY
  11. LASIX [Concomitant]
  12. K-DUR 10 [Concomitant]

REACTIONS (1)
  - MUSCLE CRAMP [None]
